FAERS Safety Report 16123274 (Version 1)
Quarter: 2019Q1

REPORT INFORMATION
  Report Type: Spontaneous
  Country: DE (occurrence: DE)
  Receive Date: 20190327
  Receipt Date: 20190327
  Transmission Date: 20190418
  Serious: Yes (Other)
  Sender: FDA-Public Use
  Company Number: DE-EMD SERONO-9080111

PATIENT
  Age: 68 Year
  Sex: Female

DRUGS (1)
  1. REBIF [Suspect]
     Active Substance: INTERFERON BETA-1A
     Indication: PRODUCT USED FOR UNKNOWN INDICATION
     Dates: start: 2010

REACTIONS (4)
  - Herpes zoster [Recovered/Resolved]
  - Complication associated with device [Unknown]
  - Stent placement [Unknown]
  - White blood cell count abnormal [Recovered/Resolved]

NARRATIVE: CASE EVENT DATE: 2017
